FAERS Safety Report 9995583 (Version 1)
Quarter: 2014Q1

REPORT INFORMATION
  Report Type: Spontaneous
  Country: US (occurrence: None)
  Receive Date: 20140307
  Receipt Date: 20140307
  Transmission Date: 20141002
  Serious: Yes (Disabling)
  Sender: FDA-Public Use
  Company Number: None

PATIENT
  Age: 78 Year
  Sex: Female
  Weight: 81.65 kg

DRUGS (13)
  1. ALENDRONATE [Suspect]
     Indication: OSTEOPOROSIS
     Dosage: 1 PILL
     Route: 048
     Dates: start: 200901, end: 20140201
  2. JANUVIA [Concomitant]
  3. GLIMEPIRIDE [Concomitant]
  4. OMEPRAZOLE [Concomitant]
  5. LOSARTAN [Concomitant]
  6. METOPROLOL [Concomitant]
  7. FENOFIBRATE [Concomitant]
  8. TRAMADOL [Concomitant]
  9. CALCIUM [Concomitant]
  10. FISH OIL [Concomitant]
  11. VITAMIN B COMPLEX [Concomitant]
  12. GLUCOSAMINE SULFATE [Concomitant]
  13. SENIOR MULTI VITAMIN [Concomitant]

REACTIONS (7)
  - Neuropathy peripheral [None]
  - Blood pressure increased [None]
  - Groin pain [None]
  - Arthralgia [None]
  - Pain in extremity [None]
  - Muscular weakness [None]
  - Blood glucose increased [None]
